FAERS Safety Report 7389555-5 (Version None)
Quarter: 2011Q2

REPORT INFORMATION
  Report Type: 
  Country: None (occurrence: None)
  Receive Date: 20110401
  Receipt Date: 20110322
  Transmission Date: 20111010
  Serious: Yes (Other)
  Sender: FDA-Public Use
  Company Number: PHHY2011BR24347

PATIENT
  Sex: Male

DRUGS (6)
  1. TEGRETOL [Suspect]
     Dosage: 400 MG, UNK
  2. LIPAMOL [Concomitant]
     Dosage: 250 MG, UNK
  3. CITALOPRAM HYDROBROMIDE [Concomitant]
     Dosage: 20 MG, UNK
  4. LAMOTRIGINE [Concomitant]
     Dosage: 50 MG, UNK
  5. RIVOTRIL [Concomitant]
  6. PRAVASTATIN [Concomitant]
     Dosage: 20 MG, UNK

REACTIONS (3)
  - CONVULSION [None]
  - CEREBROVASCULAR ACCIDENT [None]
  - LIMB DISCOMFORT [None]
